FAERS Safety Report 8394018-4 (Version None)
Quarter: 2012Q2

REPORT INFORMATION
  Report Type: 
  Country: None (occurrence: None)
  Receive Date: 20120530
  Receipt Date: 20120521
  Transmission Date: 20120825
  Serious: Yes (Other)
  Sender: FDA-Public Use
  Company Number: US-JNJFOC-20120520225

PATIENT
  Sex: Female

DRUGS (3)
  1. CETIRIZINE HYDROCHLORIDE [Suspect]
     Indication: HYPERSENSITIVITY
     Route: 065
  2. EXTRA STRENGTH TYLENOL PM [Concomitant]
     Route: 065
  3. CETIRIZINE HYDROCHLORIDE [Suspect]
     Route: 065

REACTIONS (2)
  - DRUG HYPERSENSITIVITY [None]
  - VERTIGO [None]
